FAERS Safety Report 12037323 (Version 1)
Quarter: 2016Q1

REPORT INFORMATION
  Report Type: Spontaneous
  Country: US (occurrence: None)
  Receive Date: 20160205
  Receipt Date: 20160205
  Transmission Date: 20160526
  Serious: Yes (Other)
  Sender: FDA-Public Use
  Company Number: None

PATIENT
  Age: 9 Year
  Sex: Male

DRUGS (1)
  1. HUMIRA [Suspect]
     Active Substance: ADALIMUMAB
     Indication: JUVENILE IDIOPATHIC ARTHRITIS
     Dosage: 20MG/.4 ML, Q 2 WEEKS, SUBCUTANEOUS
     Dates: start: 20151029

REACTIONS (1)
  - Injection site mass [None]

NARRATIVE: CASE EVENT DATE: 20160115
